FAERS Safety Report 16850989 (Version 1)
Quarter: 2019Q3

REPORT INFORMATION
  Report Type: Report from Study
  Country: US (occurrence: US)
  Receive Date: 20190925
  Receipt Date: 20190925
  Transmission Date: 20191005
  Serious: Yes (Other)
  Sender: FDA-Public Use
  Company Number: US-JNJFOC-20190110995

PATIENT
  Sex: Female

DRUGS (2)
  1. IMBRUVICA [Suspect]
     Active Substance: IBRUTINIB
     Indication: B-CELL SMALL LYMPHOCYTIC LYMPHOMA
     Route: 048
     Dates: start: 20181030
  2. VITAMIN D [Concomitant]
     Active Substance: VITAMIN D NOS
     Dosage: 2000 UNIT,UNK

REACTIONS (7)
  - Contusion [Unknown]
  - Surgery [Unknown]
  - Bleeding time prolonged [Unknown]
  - Speech disorder [Unknown]
  - Parathyroid disorder [Not Recovered/Not Resolved]
  - Infusion site haemorrhage [Unknown]
  - Dysphagia [Unknown]
